FAERS Safety Report 5500307-0 (Version None)
Quarter: 2007Q4

REPORT INFORMATION
  Report Type: 
  Country: None (occurrence: None)
  Receive Date: 20071025
  Receipt Date: 20071015
  Transmission Date: 20080405
  Serious: Yes (Other)
  Sender: FDA-Public Use
  Company Number: S07-USA-05498-01

PATIENT

DRUGS (2)
  1. LEXAPRO [Suspect]
  2. EFFEXOR [Suspect]

REACTIONS (2)
  - MULTIPLE DRUG OVERDOSE [None]
  - ROAD TRAFFIC ACCIDENT [None]
